FAERS Safety Report 12658453 (Version 1)
Quarter: 2016Q3

REPORT INFORMATION
  Report Type: Spontaneous
  Country: US (occurrence: US)
  Receive Date: 20160817
  Receipt Date: 20160817
  Transmission Date: 20161109
  Serious: No
  Sender: FDA-Public Use
  Company Number: US-BEH-2016072157

PATIENT
  Sex: Female

DRUGS (31)
  1. LIDOCAINE/PRILOCAINE [Concomitant]
     Active Substance: LIDOCAINE\PRILOCAINE
  2. CIPROFLOXACIN. [Concomitant]
     Active Substance: CIPROFLOXACIN
  3. MULTIVITAMIN                       /00097801/ [Concomitant]
     Active Substance: VITAMINS
  4. ACETAMINOPHEN. [Concomitant]
     Active Substance: ACETAMINOPHEN
  5. ASPIRIN. [Concomitant]
     Active Substance: ASPIRIN
  6. OXYGEN. [Concomitant]
     Active Substance: OXYGEN
  7. PENICILLIN                         /00000901/ [Concomitant]
     Active Substance: PENICILLIN G
  8. FENOFIBRATE. [Concomitant]
     Active Substance: FENOFIBRATE
  9. OMEPRAZOLE. [Concomitant]
     Active Substance: OMEPRAZOLE
  10. HIZENTRA [Suspect]
     Active Substance: HUMAN IMMUNOGLOBULIN G
     Dosage: 18 G, QW
     Route: 058
     Dates: start: 20130319
  11. JOINT                              /00500401/ [Concomitant]
  12. MEDROL [Concomitant]
     Active Substance: METHYLPREDNISOLONE
  13. SINGULAIR [Concomitant]
     Active Substance: MONTELUKAST SODIUM
  14. NORVASC [Concomitant]
     Active Substance: AMLODIPINE BESYLATE
  15. IPRATROPIUM/ALBUTEROL [Concomitant]
     Active Substance: ALBUTEROL\IPRATROPIUM
  16. LEVEMIR [Concomitant]
     Active Substance: INSULIN DETEMIR
  17. NOVOLOG [Concomitant]
     Active Substance: INSULIN ASPART
  18. HIZENTRA [Suspect]
     Active Substance: HUMAN IMMUNOGLOBULIN G
     Indication: IMMUNODEFICIENCY COMMON VARIABLE
     Dosage: UNK
     Route: 058
  19. BUSPIRONE [Concomitant]
     Active Substance: BUSPIRONE HYDROCHLORIDE
  20. VICTOZA [Concomitant]
     Active Substance: LIRAGLUTIDE
  21. DIPHENHYDRAMINE. [Concomitant]
     Active Substance: DIPHENHYDRAMINE
  22. GLIMEPIRIDE. [Concomitant]
     Active Substance: GLIMEPIRIDE
  23. BENZONATATE. [Concomitant]
     Active Substance: BENZONATATE
  24. ALEVE [Concomitant]
     Active Substance: NAPROXEN SODIUM
  25. HIZENTRA [Suspect]
     Active Substance: HUMAN IMMUNOGLOBULIN G
     Indication: STATUS ASTHMATICUS
     Dosage: UNK
     Route: 058
  26. VICODIN [Concomitant]
     Active Substance: ACETAMINOPHEN\HYDROCODONE BITARTRATE
  27. CRESTOR [Concomitant]
     Active Substance: ROSUVASTATIN CALCIUM
  28. VITAMIN C [Concomitant]
     Active Substance: ASCORBIC ACID
  29. EPIPEN [Concomitant]
     Active Substance: EPINEPHRINE
  30. VALIUM [Concomitant]
     Active Substance: DIAZEPAM
  31. PROVENTIL [Concomitant]
     Active Substance: ALBUTEROL

REACTIONS (1)
  - Needle issue [Unknown]
